FAERS Safety Report 7237360-2 (Version None)
Quarter: 2011Q1

REPORT INFORMATION
  Report Type: 
  Country: None (occurrence: None)
  Receive Date: 20110121
  Receipt Date: 20110113
  Transmission Date: 20110831
  Serious: Yes (Life-Threatening, Hospitalization)
  Sender: FDA-Public Use
  Company Number: JP-BRISTOL-MYERS SQUIBB COMPANY-15448103

PATIENT
  Age: 45 Year
  Sex: Female

DRUGS (5)
  1. AVAPRO [Suspect]
     Indication: HYPERTENSION
     Route: 048
     Dates: start: 20101016, end: 20101125
  2. MYDRIN P [Concomitant]
     Indication: GLAUCOMA
     Dates: start: 20100401
  3. AMLODIPINE [Concomitant]
     Indication: HYPERTENSION
     Route: 048
     Dates: start: 20100401, end: 20101125
  4. CARTEOLOL HYDROCHLORIDE [Concomitant]
     Dosage: MIKELAN LA
  5. CHONDROITIN SULFATE + GLUCOSAMINE [Concomitant]
     Dosage: DURATION OF THERAPY:2-3 DAYS
     Dates: start: 20101018

REACTIONS (2)
  - RESPIRATORY FAILURE [None]
  - LUNG DISORDER [None]
